FAERS Safety Report 13259671 (Version 1)
Quarter: 2017Q1

REPORT INFORMATION
  Report Type: Spontaneous
  Country: AU (occurrence: AU)
  Receive Date: 20170222
  Receipt Date: 20170222
  Transmission Date: 20170428
  Serious: Yes (Death, Other)
  Sender: FDA-Public Use
  Company Number: AU-AMGEN-AUSSP2017026627

PATIENT

DRUGS (1)
  1. PROLIA [Suspect]
     Active Substance: DENOSUMAB
     Indication: HYPOCALCAEMIA
     Dosage: UNK
     Route: 065

REACTIONS (2)
  - Death [Fatal]
  - Hypocalcaemia [Unknown]
